FAERS Safety Report 19393923 (Version 1)
Quarter: 2021Q2

REPORT INFORMATION
  Report Type: Spontaneous
  Country: US (occurrence: US)
  Receive Date: 20210608
  Receipt Date: 20210608
  Transmission Date: 20210717
  Serious: Yes (Hospitalization)
  Sender: FDA-Public Use
  Company Number: None

PATIENT
  Sex: Female

DRUGS (12)
  1. DALFAMPRIDINE. [Suspect]
     Active Substance: DALFAMPRIDINE
     Indication: MULTIPLE SCLEROSIS
     Route: 048
     Dates: start: 20201012
  2. BACLOFEN. [Concomitant]
     Active Substance: BACLOFEN
  3. HYDROCHLOROTHIAZIDE. [Concomitant]
     Active Substance: HYDROCHLOROTHIAZIDE
  4. MAGNESIUM [Concomitant]
     Active Substance: MAGNESIUM
  5. COPAXONE [Concomitant]
     Active Substance: GLATIRAMER ACETATE
  6. BUSPIRONE [Concomitant]
     Active Substance: BUSPIRONE HYDROCHLORIDE
  7. AMLODIPINE [Concomitant]
     Active Substance: AMLODIPINE BESYLATE
  8. PRESERVISION [Concomitant]
     Active Substance: MINERALS\VITAMINS
  9. SYNTHROID [Concomitant]
     Active Substance: LEVOTHYROXINE SODIUM
  10. VENALFAXINE [Concomitant]
  11. LISINOPRIL. [Concomitant]
     Active Substance: LISINOPRIL
  12. CALCIUM [Concomitant]
     Active Substance: CALCIUM

REACTIONS (3)
  - Multiple sclerosis [None]
  - Therapy interrupted [None]
  - Hypertension [None]
